FAERS Safety Report 10309986 (Version 1)
Quarter: 2014Q3

REPORT INFORMATION
  Report Type: Spontaneous
  Country: US (occurrence: None)
  Receive Date: 20140715
  Receipt Date: 20140715
  Transmission Date: 20150326
  Serious: Yes (Life-Threatening)
  Sender: FDA-Public Use
  Company Number: None

PATIENT
  Age: 11 Year
  Sex: Male
  Weight: 49.9 kg

DRUGS (1)
  1. PROAIR HFA [Suspect]
     Active Substance: ALBUTEROL SULFATE
     Indication: ASTHMA
     Dosage: 2-3 PUFFS, AS NEEDED  AS NEEDED INHALATION
     Route: 055
     Dates: start: 20140712, end: 20140712

REACTIONS (3)
  - Product substitution issue [None]
  - Loss of consciousness [None]
  - Device failure [None]

NARRATIVE: CASE EVENT DATE: 20140712
